FAERS Safety Report 5618468-1 (Version None)
Quarter: 2008Q1

REPORT INFORMATION
  Report Type: 
  Country: None (occurrence: None)
  Receive Date: 20080207
  Receipt Date: 20080201
  Transmission Date: 20080703
  Serious: Yes (Death)
  Sender: FDA-Public Use
  Company Number: A0707858A

PATIENT
  Age: 81 Year
  Sex: Male
  Weight: 48 kg

DRUGS (1)
  1. SERETIDE [Suspect]
     Indication: LUNG DISORDER
     Route: 055
     Dates: start: 20070615, end: 20071119

REACTIONS (1)
  - DEATH [None]
